FAERS Safety Report 10224093 (Version 1)
Quarter: 2014Q2

REPORT INFORMATION
  Report Type: Spontaneous
  Country: GB (occurrence: None)
  Receive Date: 20140605
  Receipt Date: 20140605
  Transmission Date: 20141212
  Serious: Yes (Death)
  Sender: FDA-Public Use
  Company Number: 2014-001524

PATIENT
  Sex: Female

DRUGS (2)
  1. SARAFEM [Suspect]
     Indication: DEPRESSION
     Route: 048
     Dates: start: 20120423
  2. MIRTAZAPINE [Suspect]
     Indication: DEPRESSION
     Dates: start: 20120329

REACTIONS (5)
  - Completed suicide [None]
  - Depression [None]
  - Personality change [None]
  - Multiple injuries [None]
  - Accident [None]
